FAERS Safety Report 5885629-6 (Version None)
Quarter: 2008Q3

REPORT INFORMATION
  Report Type: 
  Country: None (occurrence: None)
  Receive Date: 20080916
  Receipt Date: 20080911
  Transmission Date: 20090109
  Serious: Yes (Life-Threatening, Hospitalization)
  Sender: FDA-Public Use
  Company Number: CH-ABBOTT-08P-151-0475800-00

PATIENT
  Age: 49 Year
  Sex: Female

DRUGS (6)
  1. KALETRA [Suspect]
     Indication: HIV INFECTION
     Dosage: 5 ML TWICE DAILY, 800MG/200MG DAILY
     Route: 048
     Dates: start: 20080101, end: 20080707
  2. METHADONE HCL [Interacting]
     Indication: MENTAL DISORDER
     Route: 048
     Dates: end: 20080707
  3. METHADONE HCL [Interacting]
     Indication: ABNORMAL BEHAVIOUR
  4. METHADONE HCL [Interacting]
     Indication: DRUG ABUSE
  5. ABACAVIR SULFATE [Concomitant]
     Indication: HIV INFECTION
     Dosage: DAILY
     Route: 048
     Dates: start: 20080101, end: 20080707
  6. MORPHINE [Concomitant]
     Indication: DRUG USE FOR UNKNOWN INDICATION
     Dates: start: 20080707

REACTIONS (8)
  - DISTURBANCE IN ATTENTION [None]
  - DRUG INTERACTION [None]
  - DRUG LEVEL DECREASED [None]
  - DRUG TOXICITY [None]
  - ELECTROCARDIOGRAM QT PROLONGED [None]
  - HYPOKALAEMIA [None]
  - TORSADE DE POINTES [None]
  - VOMITING [None]
